FAERS Safety Report 7333184-6 (Version None)
Quarter: 2011Q1

REPORT INFORMATION
  Report Type: 
  Country: None (occurrence: None)
  Receive Date: 20110222
  Receipt Date: 20110208
  Transmission Date: 20110831
  Serious: Yes (Other)
  Sender: FDA-Public Use
  Company Number: 2011AP000237

PATIENT
  Age: 66 Year
  Sex: Male

DRUGS (6)
  1. CITALOPRAM HYDROBROMIDE [Suspect]
     Indication: DEPRESSION
     Dosage: 20 MG
     Route: 048
     Dates: start: 20100924, end: 20110117
  2. NOVOLOG [Concomitant]
  3. INSULIN GLARGINE (INSULIN GLARGINE) [Concomitant]
  4. LOPERAMIDE [Concomitant]
  5. ZOPICLONE (ZOPICLONE) [Concomitant]
  6. METFORMIN (METFORMIN) [Concomitant]

REACTIONS (1)
  - SOMNAMBULISM [None]
